FAERS Safety Report 8943334 (Version 1)
Quarter: 2012Q4

REPORT INFORMATION
  Report Type: 
  Country: FR (occurrence: FR)
  Receive Date: 20121204
  Receipt Date: 20121204
  Transmission Date: 20130627
  Serious: Yes (Hospitalization)
  Sender: FDA-Public Use
  Company Number: FR-ELI_LILLY_AND_COMPANY-FR201211007293

PATIENT
  Age: 62 Year
  Sex: Male

DRUGS (4)
  1. ALIMTA [Suspect]
     Indication: NEOPLASM MALIGNANT
     Dosage: 855 mg, UNK
     Route: 042
     Dates: start: 20120726
  2. ALIMTA [Suspect]
     Dosage: UNK
     Dates: start: 20120816
  3. CISPLATIN [Concomitant]
     Indication: NEOPLASM MALIGNANT
     Dosage: 130 mg, UNK
     Dates: start: 20120726
  4. AVASTIN [Concomitant]
     Indication: NEOPLASM MALIGNANT
     Dosage: 990 mg, UNK
     Dates: start: 20120726

REACTIONS (2)
  - Deep vein thrombosis [Recovered/Resolved]
  - Off label use [Unknown]
